FAERS Safety Report 8431329-8 (Version None)
Quarter: 2012Q2

REPORT INFORMATION
  Report Type: 
  Country: None (occurrence: None)
  Receive Date: 20120613
  Receipt Date: 20120608
  Transmission Date: 20120825
  Serious: Yes (Hospitalization)
  Sender: FDA-Public Use
  Company Number: US-BIOGENIDEC-2012BI020502

PATIENT
  Age: 48 Year
  Sex: Male

DRUGS (3)
  1. AVONEX [Suspect]
     Indication: MULTIPLE SCLEROSIS
     Route: 030
  2. AVONEX [Suspect]
     Route: 030
     Dates: start: 20110901, end: 20120101
  3. AVONEX [Suspect]
     Route: 030
     Dates: start: 20120601

REACTIONS (1)
  - CORONARY ARTERIAL STENT INSERTION [None]
